FAERS Safety Report 11708053 (Version 1)
Quarter: 2020Q3

REPORT INFORMATION
  Report Type: Spontaneous
  Country: GB (occurrence: GB)
  Receive Date: 20151107
  Receipt Date: 20151107
  Transmission Date: 20201104
  Serious: Yes (Death)
  Sender: FDA-Public Use
  Company Number: GB-CIPLA LTD.-2015GB08363

PATIENT

DRUGS (3)
  1. CEDIRANIB. [Suspect]
     Active Substance: CEDIRANIB
     Indication: CERVIX CARCINOMA RECURRENT
     Dosage: 20 MG, QD, ONE CYCLE
     Route: 048
  2. CARBOPLATIN. [Suspect]
     Active Substance: CARBOPLATIN
     Indication: CERVIX CARCINOMA RECURRENT
     Dosage: AREA UNDER THE CURVE OF 5, ONE CYCLE
  3. PACLITAXEL. [Suspect]
     Active Substance: PACLITAXEL
     Indication: CERVIX CARCINOMA RECURRENT
     Dosage: 175 MG/M2 (INFUSED OVER 3 H) FOR UP TO ONE CYCLE REPEATED EVERY 3 WEEKS

REACTIONS (1)
  - Large intestine perforation [Fatal]
